FAERS Safety Report 10023710 (Version 1)
Quarter: 2014Q1

REPORT INFORMATION
  Report Type: Spontaneous
  Country: FR (occurrence: None)
  Receive Date: 20140109
  Receipt Date: 20140109
  Transmission Date: 20141002
  Serious: Yes (Other)
  Sender: FDA-Public Use
  Company Number: BAP-FR-13-SPO-0072

PATIENT
  Age: 87 Year
  Sex: Female
  Weight: 60 kg

DRUGS (14)
  1. LORAMYC [Suspect]
     Indication: FUNGAL INFECTION
     Route: 002
     Dates: start: 20131024, end: 20131115
  2. FORLAX [Concomitant]
  3. LOVENOX [Concomitant]
  4. IMOVANE [Concomitant]
  5. TRANSIPEG [Concomitant]
  6. ALDACTAZINE [Concomitant]
  7. SEROPLEX [Concomitant]
  8. DIFFU K [Concomitant]
  9. LEVOTHYROX [Concomitant]
  10. LANSOPRAZOLE [Concomitant]
  11. CELESTAMINE [Concomitant]
  12. BIPERIDYS [Concomitant]
  13. GAVISCON [Concomitant]
  14. SERESTA [Concomitant]

REACTIONS (5)
  - Hepatitis [None]
  - Dysglobulinaemia [None]
  - Renal atrophy [None]
  - Cholelithiasis [None]
  - Hepatic cyst [None]
